FAERS Safety Report 9196640 (Version 1)
Quarter: 2013Q1

REPORT INFORMATION
  Report Type: Spontaneous
  Country: DK (occurrence: DK)
  Receive Date: 20130328
  Receipt Date: 20130328
  Transmission Date: 20140127
  Serious: Yes (Disabling, Other)
  Sender: FDA-Public Use
  Company Number: DK-PFIZER INC-2012170325

PATIENT
  Sex: Female
  Weight: 61 kg

DRUGS (10)
  1. ZARATOR [Suspect]
     Indication: HYPERCHOLESTEROLAEMIA
     Dosage: 40 MG, DAILY
     Route: 048
     Dates: start: 20091230, end: 20110207
  2. PREDNISON [Concomitant]
     Indication: LIVER TRANSPLANT
     Dosage: UNK
  3. SANDIMMUN NEORAL [Concomitant]
     Indication: LIVER TRANSPLANT
     Dosage: UNK
  4. IMUREL [Concomitant]
     Indication: LIVER TRANSPLANT
     Dosage: UNK
  5. CORODIL [Concomitant]
     Indication: HYPERTENSION
     Dosage: UNK
  6. ZOLOFT [Concomitant]
     Dosage: UNK
  7. DIURAL [Concomitant]
     Indication: HYPERTENSION
     Dosage: UNK
  8. KALEORID [Concomitant]
     Dosage: UNK
  9. NORVASC [Concomitant]
     Indication: HYPERTENSION
     Dosage: UNK
  10. SELO-ZOK [Concomitant]
     Indication: HYPERTENSION
     Dosage: UNK

REACTIONS (3)
  - Myalgia [Recovered/Resolved]
  - Muscular dystrophy [Not Recovered/Not Resolved]
  - Muscular weakness [Not Recovered/Not Resolved]
